FAERS Safety Report 7374681-7 (Version None)
Quarter: 2011Q1

REPORT INFORMATION
  Report Type: 
  Country: None (occurrence: None)
  Receive Date: 20110325
  Receipt Date: 20100721
  Transmission Date: 20110831
  Serious: No
  Sender: FDA-Public Use
  Company Number: US-MYLANLABS-2010S1013116

PATIENT
  Age: 39 Year
  Sex: Female

DRUGS (11)
  1. PREDNISONE [Concomitant]
  2. ALLOPURINOL [Concomitant]
  3. CAPTOPRIL [Concomitant]
  4. ACTIQ [Concomitant]
  5. POTASSIUM CITRATE [Concomitant]
  6. PROMETHAZINE [Concomitant]
     Indication: NAUSEA
  7. CYCLOBENZAPRINE [Concomitant]
     Indication: MUSCULOSKELETAL STIFFNESS
  8. ATENOLOL [Concomitant]
  9. DILTIAZEM HCL [Concomitant]
  10. IMITREX [Concomitant]
     Indication: MIGRAINE
  11. FENTANYL-100 [Suspect]
     Indication: PAIN
     Dosage: Q48H
     Route: 062
     Dates: start: 20080101

REACTIONS (3)
  - PAIN [None]
  - DRUG EFFECT DECREASED [None]
  - DRUG WITHDRAWAL SYNDROME [None]
